FAERS Safety Report 5282135-7 (Version None)
Quarter: 2007Q1

REPORT INFORMATION
  Report Type: 
  Country: None (occurrence: None)
  Receive Date: 20070330
  Receipt Date: 20070320
  Transmission Date: 20070707
  Serious: Yes (Death, Hospitalization, Other)
  Sender: FDA-Public Use
  Company Number: US-PFIZER INC-2006133696

PATIENT
  Sex: Female

DRUGS (2)
  1. CELEBREX [Suspect]
     Indication: ARTHRITIS
     Route: 048
     Dates: start: 19990520, end: 19990819
  2. VIOXX [Suspect]
     Route: 048
     Dates: start: 19991216, end: 20020314

REACTIONS (1)
  - ISCHAEMIC STROKE [None]
